FAERS Safety Report 7940059-8 (Version None)
Quarter: 2011Q4

REPORT INFORMATION
  Report Type: 
  Country: None (occurrence: None)
  Receive Date: 20111125
  Receipt Date: 20111115
  Transmission Date: 20120403
  Serious: Yes (Other)
  Sender: FDA-Public Use
  Company Number: PHHY2011MX101713

PATIENT
  Age: 87 Year
  Sex: Male

DRUGS (2)
  1. ONBREZ [Concomitant]
     Dosage: 1 DF DAILY
  2. EXFORGE HCT [Suspect]
     Indication: HYPERTENSION
     Dosage: 1 TABLET (320/10/25 MG) DAILY
     Dates: start: 20111001

REACTIONS (2)
  - COUGH [None]
  - EMBOLISM [None]
